FAERS Safety Report 15942310 (Version 2)
Quarter: 2019Q3

REPORT INFORMATION
  Report Type: Spontaneous
  Country: US (occurrence: US)
  Receive Date: 20190209
  Receipt Date: 20190730
  Transmission Date: 20191004
  Serious: Yes (Other)
  Sender: FDA-Public Use
  Company Number: US-ASTRAZENECA-2018SF65279

PATIENT
  Sex: Female

DRUGS (8)
  1. PREVACID [Suspect]
     Active Substance: LANSOPRAZOLE
     Route: 065
  2. PRILOSEC [Suspect]
     Active Substance: OMEPRAZOLE MAGNESIUM
     Route: 048
  3. CLOPIDOGREL [Concomitant]
     Active Substance: CLOPIDOGREL BISULFATE
     Dates: start: 2013
  4. NEXIUM [Suspect]
     Active Substance: ESOMEPRAZOLE MAGNESIUM
     Route: 048
  5. PROTONIX [Suspect]
     Active Substance: PANTOPRAZOLE SODIUM
     Route: 065
  6. AMITRIPTYLINE [Concomitant]
     Active Substance: AMITRIPTYLINE
     Dates: start: 2013
  7. LISINOPRIL. [Concomitant]
     Active Substance: LISINOPRIL
     Dates: start: 2013
  8. BUMETANIDE. [Concomitant]
     Active Substance: BUMETANIDE
     Dates: start: 2013

REACTIONS (5)
  - Nephropathy [Not Recovered/Not Resolved]
  - Chronic kidney disease [Unknown]
  - Renal failure [Unknown]
  - Rebound acid hypersecretion [Unknown]
  - Renal injury [Unknown]
